FAERS Safety Report 5156066-7 (Version None)
Quarter: 2006Q4

REPORT INFORMATION
  Report Type: 
  Country: None (occurrence: None)
  Receive Date: 20061122
  Receipt Date: 20061111
  Transmission Date: 20070319
  Serious: Yes (Other)
  Sender: FDA-Public Use
  Company Number: PHRM2006FR03037

PATIENT
  Age: 55 Year
  Sex: Male

DRUGS (3)
  1. ENDOXAN [Concomitant]
     Indication: POLYMYOSITIS
  2. CORTICOSTEROID NOS [Concomitant]
     Indication: POLYMYOSITIS
  3. GLEEVEC [Suspect]
     Indication: CHRONIC MYELOID LEUKAEMIA
     Dosage: 400 MG DAILY
     Route: 048
     Dates: start: 20050801

REACTIONS (2)
  - CARDIOMYOPATHY [None]
  - CONDITION AGGRAVATED [None]
